FAERS Safety Report 25089286 (Version 1)
Quarter: 2025Q1

REPORT INFORMATION
  Report Type: Spontaneous
  Country: DE (occurrence: DE)
  Receive Date: 20250318
  Receipt Date: 20250318
  Transmission Date: 20250409
  Serious: Yes (Other)
  Sender: MYLAN
  Company Number: None

PATIENT
  Age: 65 Year
  Sex: Female

DRUGS (24)
  1. ATORVASTATIN [Suspect]
     Active Substance: ATORVASTATIN
     Indication: Product used for unknown indication
  2. ATORVASTATIN [Suspect]
     Active Substance: ATORVASTATIN
     Route: 065
  3. ATORVASTATIN [Suspect]
     Active Substance: ATORVASTATIN
     Route: 065
  4. ATORVASTATIN [Suspect]
     Active Substance: ATORVASTATIN
  5. LEVOTHYROXINE SODIUM [Concomitant]
     Active Substance: LEVOTHYROXINE SODIUM
  6. LEVOTHYROXINE SODIUM [Concomitant]
     Active Substance: LEVOTHYROXINE SODIUM
     Route: 065
  7. LEVOTHYROXINE SODIUM [Concomitant]
     Active Substance: LEVOTHYROXINE SODIUM
     Route: 065
  8. LEVOTHYROXINE SODIUM [Concomitant]
     Active Substance: LEVOTHYROXINE SODIUM
  9. IVABRADINE [Concomitant]
     Active Substance: IVABRADINE
  10. IVABRADINE [Concomitant]
     Active Substance: IVABRADINE
     Route: 065
  11. IVABRADINE [Concomitant]
     Active Substance: IVABRADINE
     Route: 065
  12. IVABRADINE [Concomitant]
     Active Substance: IVABRADINE
  13. TELMISARTAN [Concomitant]
     Active Substance: TELMISARTAN
  14. TELMISARTAN [Concomitant]
     Active Substance: TELMISARTAN
     Route: 065
  15. TELMISARTAN [Concomitant]
     Active Substance: TELMISARTAN
     Route: 065
  16. TELMISARTAN [Concomitant]
     Active Substance: TELMISARTAN
  17. CALCITRIOL [Concomitant]
     Active Substance: CALCITRIOL
  18. CALCITRIOL [Concomitant]
     Active Substance: CALCITRIOL
     Route: 065
  19. CALCITRIOL [Concomitant]
     Active Substance: CALCITRIOL
     Route: 065
  20. CALCITRIOL [Concomitant]
     Active Substance: CALCITRIOL
  21. Novamin [Concomitant]
  22. Novamin [Concomitant]
     Route: 065
  23. Novamin [Concomitant]
     Route: 065
  24. Novamin [Concomitant]

REACTIONS (14)
  - Polymyalgia rheumatica [Recovered/Resolved]
  - Gait inability [Recovered/Resolved]
  - Mobility decreased [Recovered/Resolved]
  - Bone disorder [Recovered/Resolved]
  - Musculoskeletal discomfort [Recovered/Resolved]
  - Chills [Recovered/Resolved]
  - C-reactive protein increased [Recovered/Resolved]
  - Arthralgia [Recovered/Resolved]
  - Myalgia [Recovered/Resolved]
  - Pain in extremity [Recovered/Resolved]
  - Peripheral swelling [Recovered/Resolved]
  - Muscular weakness [Recovered/Resolved]
  - Joint swelling [Recovered/Resolved]
  - Body temperature increased [Recovered/Resolved]

NARRATIVE: CASE EVENT DATE: 20240101
